FAERS Safety Report 20491477 (Version 1)
Quarter: 2022Q1

REPORT INFORMATION
  Report Type: Spontaneous
  Country: US (occurrence: None)
  Receive Date: 20220218
  Receipt Date: 20220218
  Transmission Date: 20220424
  Serious: No
  Sender: FDA-Public Use
  Company Number: None

PATIENT
  Sex: Female

DRUGS (1)
  1. SUNITINIB MALATE [Suspect]
     Active Substance: SUNITINIB MALATE
     Indication: Gastrointestinal stromal tumour
     Dosage: FREQUENCY : DAILY;?TAKE 1 CAPSULE BY MOUTH 1 TIME A DAY FOR 4 WEEKS ON, THEN 2 WEEKS OFF.
     Route: 048
     Dates: start: 20211103, end: 20211215

REACTIONS (1)
  - Cardiac failure [None]
